FAERS Safety Report 13872990 (Version 1)
Quarter: 2017Q3

REPORT INFORMATION
  Report Type: Spontaneous
  Country: US (occurrence: None)
  Receive Date: 20170814
  Receipt Date: 20170814
  Transmission Date: 20171127
  Serious: No
  Sender: FDA-Public Use
  Company Number: None

PATIENT
  Age: 45 Year
  Sex: Male

DRUGS (1)
  1. HUMIRA [Suspect]
     Active Substance: ADALIMUMAB
     Indication: CROHN^S DISEASE
     Dosage: FREQUENCY - ON DAY 1
     Route: 058
     Dates: start: 20170718, end: 20170730

REACTIONS (7)
  - Hypoaesthesia [None]
  - Headache [None]
  - Oral fungal infection [None]
  - Peripheral swelling [None]
  - Dizziness [None]
  - Paraesthesia [None]
  - Oropharyngeal pain [None]

NARRATIVE: CASE EVENT DATE: 20170725
